FAERS Safety Report 26194919 (Version 1)
Quarter: 2025Q4

REPORT INFORMATION
  Report Type: Spontaneous
  Country: JP (occurrence: JP)
  Receive Date: 20251224
  Receipt Date: 20251224
  Transmission Date: 20260117
  Serious: Yes (Other)
  Sender: ROCHE
  Company Number: JP-CHUGAI-2025041753AA

PATIENT
  Age: 8 Decade

DRUGS (2)
  1. LUNSUMIO [Suspect]
     Active Substance: MOSUNETUZUMAB-AXGB
     Indication: Follicular lymphoma
     Dosage: 1 MILLIGRAM, ONCE/WEEK
     Route: 041
     Dates: start: 20250924, end: 20250924
  2. LUNSUMIO [Suspect]
     Active Substance: MOSUNETUZUMAB-AXGB
     Dosage: 2 MILLIGRAM, ONCE/WEEK
     Route: 041
     Dates: start: 20251001, end: 20251001

REACTIONS (4)
  - Capillary leak syndrome [Recovered/Resolved]
  - Inflammation [Unknown]
  - Oedema [Recovered/Resolved]
  - Liver function test increased [Unknown]

NARRATIVE: CASE EVENT DATE: 20250924
